FAERS Safety Report 14567209 (Version 3)
Quarter: 2018Q1

REPORT INFORMATION
  Report Type: Spontaneous
  Country: BR (occurrence: BR)
  Receive Date: 20180223
  Receipt Date: 20180328
  Transmission Date: 20180509
  Serious: Yes (Other)
  Sender: FDA-Public Use
  Company Number: BR-PFIZER INC-2018076438

PATIENT
  Age: 58 Year
  Sex: Male

DRUGS (1)
  1. ADVIL [Suspect]
     Active Substance: IBUPROFEN
     Indication: HEADACHE
     Dosage: 1 DF, AS NEEDED (1 TABLET, WHEN NECESSARY)
     Route: 048

REACTIONS (4)
  - Burn oral cavity [Recovered/Resolved]
  - Product physical issue [Recovered/Resolved]
  - Poor quality drug administered [Recovered/Resolved]
  - Oral discomfort [Recovered/Resolved]

NARRATIVE: CASE EVENT DATE: 20180221
